FAERS Safety Report 6899852-5 (Version None)
Quarter: 2010Q3

REPORT INFORMATION
  Report Type: 
  Country: None (occurrence: None)
  Receive Date: 20100803
  Receipt Date: 20100726
  Transmission Date: 20110219
  Serious: Yes (Death)
  Sender: FDA-Public Use
  Company Number: CA-CELGENEUS-028-C5013-10072304

PATIENT
  Sex: Male
  Weight: 87.3 kg

DRUGS (25)
  1. LENALIDOMIDE [Suspect]
     Route: 048
     Dates: start: 20100720, end: 20100724
  2. CALCIUM AND VIT D [Concomitant]
     Indication: SUPPLEMENTATION THERAPY
     Route: 048
     Dates: start: 20000101, end: 20100720
  3. OMEGA-3-ACID ETHYL ESTERS [Concomitant]
     Indication: SUPPLEMENTATION THERAPY
     Dosage: 400-200MG
     Route: 048
     Dates: start: 20000101, end: 20100720
  4. MULTI-VITAMIN [Concomitant]
     Indication: SUPPLEMENTATION THERAPY
     Route: 048
     Dates: end: 20100720
  5. VITAMIN D [Concomitant]
     Indication: SUPPLEMENTATION THERAPY
     Route: 048
     Dates: start: 20080101, end: 20100720
  6. MAGNESIUM [Concomitant]
     Indication: SUPPLEMENTATION THERAPY
     Route: 048
     Dates: start: 20090101, end: 20100720
  7. LASIX [Concomitant]
     Indication: OEDEMA PERIPHERAL
     Route: 048
     Dates: start: 20100707, end: 20100713
  8. COLACE [Concomitant]
     Indication: CONSTIPATION
     Route: 048
     Dates: start: 20100706
  9. SIMVASTATIN [Concomitant]
     Indication: DYSLIPIDAEMIA
     Route: 048
     Dates: start: 20090801
  10. SEPTRA [Concomitant]
     Indication: PROPHYLAXIS
     Dosage: 800/160 MILLIGRAM
     Route: 048
  11. PLAVIX [Concomitant]
     Indication: PROPHYLAXIS
     Route: 048
     Dates: start: 20090801, end: 20100720
  12. PANTOPRAZOLE [Concomitant]
     Indication: GASTROOESOPHAGEAL REFLUX DISEASE
     Route: 048
     Dates: start: 20090801
  13. METOPROLOL [Concomitant]
     Indication: PROPHYLAXIS
     Route: 048
     Dates: start: 20090801
  14. AMLODIPINE [Concomitant]
     Indication: PROPHYLAXIS
     Route: 048
     Dates: start: 20090801
  15. IMOVANE [Concomitant]
     Indication: INSOMNIA
     Route: 048
     Dates: start: 20090801
  16. PREDNISONE [Concomitant]
     Indication: LYMPHADENOPATHY
     Route: 048
     Dates: start: 20100713, end: 20100719
  17. ALLOPURINOL [Concomitant]
     Route: 048
     Dates: start: 20100713, end: 20100719
  18. ALLOPURINOL [Concomitant]
     Route: 048
     Dates: start: 20100720, end: 20100720
  19. ALLOPURINOL [Concomitant]
     Route: 048
     Dates: start: 20100721
  20. ASPIRIN [Concomitant]
     Indication: THROMBOSIS PROPHYLAXIS
     Route: 048
     Dates: start: 20100720
  21. AMPHOJEL [Concomitant]
     Indication: PROPHYLAXIS
     Route: 048
     Dates: start: 20100720, end: 20100723
  22. LEVAQUIN [Concomitant]
     Indication: SINUSITIS
     Route: 048
     Dates: start: 20100722
  23. RASBURICASE [Concomitant]
     Indication: PROPHYLAXIS
     Route: 051
     Dates: start: 20100720, end: 20100720
  24. NORMAL SALINE [Concomitant]
     Indication: PROPHYLAXIS
     Route: 051
     Dates: start: 20100720, end: 20100723
  25. NORMAL SALINE [Concomitant]
     Indication: TUMOUR FLARE

REACTIONS (1)
  - DEATH [None]
